FAERS Safety Report 9507886 (Version 1)
Quarter: 2013Q1

REPORT INFORMATION
  Report Type: Spontaneous
  Country: US (occurrence: None)
  Receive Date: 20130305
  Receipt Date: 20130305
  Transmission Date: 20140127
  Serious: Yes (Other)
  Sender: FDA-Public Use
  Company Number: 163-21880-11092742

PATIENT
  Age: 62 Year
  Sex: Female

DRUGS (14)
  1. REVLIMID (LENALIDOMIDE) (25 MILLIGRAM, CAPSULES) [Suspect]
     Indication: PLASMA CELL MYELOMA
     Dosage: 25 MG, 1 IN 1 D, PO
     Route: 048
     Dates: start: 201107, end: 20110822
  2. ASPIRIN [Concomitant]
  3. ATENOLOL [Concomitant]
  4. CALCIUM PLUS VITAMIN D [Concomitant]
  5. DECADRON (DEXAMETHASONE) [Concomitant]
  6. GLIPIZIDE XL [Concomitant]
  7. HERBAL LAXATIVE (SENNA) [Concomitant]
  8. IRON [Concomitant]
  9. LISINOPRIL AND HYDROCHLOROTHIAZIDE [Concomitant]
  10. METFORMIN HCL [Concomitant]
  11. SENOKOT S [Concomitant]
  12. SIMVASTATIN [Concomitant]
  13. VITAMIN B12 (CYANOCOBALAMIN) [Concomitant]
  14. VELCADE (BORTEZOMIB) [Concomitant]

REACTIONS (1)
  - Thrombocytopenia [None]
